FAERS Safety Report 5642587-7 (Version None)
Quarter: 2008Q1

REPORT INFORMATION
  Report Type: 
  Country: None (occurrence: None)
  Receive Date: 20080228
  Receipt Date: 20080214
  Transmission Date: 20080703
  Serious: Yes (Hospitalization, Other)
  Sender: FDA-Public Use
  Company Number: DE-BRISTOL-MYERS SQUIBB COMPANY-14086276

PATIENT
  Age: 33 Year
  Sex: Female

DRUGS (30)
  1. UROMITEXAN [Suspect]
     Indication: WEGENER'S GRANULOMATOSIS
     Route: 048
     Dates: start: 20040910, end: 20041002
  2. ENDOXAN [Suspect]
     Indication: WEGENER'S GRANULOMATOSIS
     Route: 048
     Dates: start: 20040910, end: 20041002
  3. CERNEVIT-12 [Suspect]
     Indication: HYPOVITAMINOSIS
     Dosage: 1DF=1 AMP
     Route: 042
     Dates: start: 20040914, end: 20041011
  4. AMPHO-MORONAL [Concomitant]
     Indication: APHTHOUS STOMATITIS
     Route: 048
     Dates: start: 20040911
  5. LASIX [Concomitant]
     Dates: start: 20040917
  6. PROPOFOL [Concomitant]
     Indication: SEDATION
     Route: 042
     Dates: start: 20040913, end: 20040918
  7. PASPERTIN [Concomitant]
     Indication: NAUSEA
     Route: 042
     Dates: start: 20040914, end: 20040919
  8. MIDAZOLAM HCL [Concomitant]
     Indication: ENDOTRACHEAL INTUBATION
     Route: 042
     Dates: start: 20040917, end: 20040923
  9. NOREPINEPHRINE BITARTRATE [Concomitant]
     Indication: ENDOTRACHEAL INTUBATION
     Route: 042
     Dates: start: 20040914, end: 20040925
  10. CEFTRIAXONE [Concomitant]
     Indication: SEPSIS
     Route: 042
     Dates: start: 20040911, end: 20040926
  11. PANTOZOL [Concomitant]
     Indication: PROPHYLAXIS
     Route: 048
     Dates: start: 20040911, end: 20040926
  12. FLUCLOXACILLIN [Concomitant]
     Indication: SEPSIS
     Route: 042
     Dates: start: 20040915, end: 20040927
  13. GLUCOSE [Concomitant]
     Dates: start: 20040902, end: 20040930
  14. PREDNISOLONE [Concomitant]
     Dates: start: 20040908, end: 20041003
  15. VALPROATE SODIUM [Concomitant]
     Indication: EPILEPSY
     Dates: start: 20040912
  16. VALPROATE SODIUM [Concomitant]
     Dates: end: 20040912
  17. CLEXANE [Concomitant]
     Indication: THROMBOSIS PROPHYLAXIS
     Route: 042
     Dates: start: 20040911
  18. INSULIN HUMAN [Concomitant]
     Indication: HYPERGLYCAEMIA
     Dosage: ALSO TAKEN FROM 20SEP04 TO 23SEP04
     Dates: start: 20040918, end: 20040920
  19. EUTHROID-1 [Concomitant]
     Indication: HYPOTHYROIDISM
     Route: 048
     Dates: start: 20040918
  20. KONAKION [Concomitant]
     Indication: COAGULOPATHY
     Route: 042
     Dates: start: 20040919, end: 20040928
  21. MORPHINE [Concomitant]
     Indication: PAIN
     Dates: start: 20040923, end: 20040929
  22. LORAZEPAM [Concomitant]
     Indication: SEDATION
     Route: 042
     Dates: start: 20040923
  23. CLONT [Concomitant]
     Indication: STAPHYLOCOCCAL SEPSIS
     Route: 042
     Dates: start: 20040924, end: 20040930
  24. ATOSIL [Concomitant]
     Indication: SEDATION
     Route: 048
     Dates: start: 20040926, end: 20041003
  25. KALINOR [Concomitant]
     Indication: BLOOD POTASSIUM DECREASED
     Dates: start: 20040928, end: 20041013
  26. FENTANYL [Concomitant]
     Indication: RESPIRATORY FAILURE
     Route: 042
     Dates: start: 20040917, end: 20040923
  27. FUROSEMIDE [Concomitant]
     Indication: OEDEMA
     Dates: start: 20040921, end: 20040922
  28. ACETAMINOPHEN [Concomitant]
     Indication: PYREXIA
     Dates: start: 20041001, end: 20041001
  29. TRACUTIL [Concomitant]
     Dates: start: 20040914, end: 20040926
  30. DEPO-CLINOVIR [Concomitant]
     Dates: start: 20040101

REACTIONS (2)
  - PULMONARY CONGESTION [None]
  - STEVENS-JOHNSON SYNDROME [None]
